FAERS Safety Report 11311293 (Version 1)
Quarter: 2015Q3

REPORT INFORMATION
  Report Type: Spontaneous
  Country: FR (occurrence: None)
  Receive Date: 20150723
  Receipt Date: 20150723
  Transmission Date: 20151125
  Serious: Yes (Hospitalization)
  Sender: FDA-Public Use
  Company Number: 2015-001493

PATIENT
  Age: 66 Year
  Sex: Female
  Weight: 53 kg

DRUGS (6)
  1. DOLIPRANE [Concomitant]
     Active Substance: ACETAMINOPHEN
  2. UVEDOSE (COLECALCIFEROL) [Concomitant]
  3. ACTONEL [Suspect]
     Active Substance: RISEDRONATE SODIUM
     Route: 048
     Dates: start: 2005, end: 2009
  4. LEVOTHYROXINE (LEVOTHYROXINE) [Concomitant]
     Active Substance: LEVOTHYROXINE
  5. SIMVASTATIN (SIMVASTATIN) [Concomitant]
     Active Substance: SIMVASTATIN
  6. OROCAL D3 (CALCIUM CARBONATE, COLECALCIFEROL) [Concomitant]

REACTIONS (6)
  - Adenocarcinoma gastric [None]
  - Septic shock [None]
  - Intestinal perforation [None]
  - Intestinal ischaemia [None]
  - Peritonitis [None]
  - Multi-organ failure [None]

NARRATIVE: CASE EVENT DATE: 201502
